FAERS Safety Report 7957078-8 (Version None)
Quarter: 2011Q4

REPORT INFORMATION
  Report Type: 
  Country: None (occurrence: None)
  Receive Date: 20111205
  Receipt Date: 20111130
  Transmission Date: 20120403
  Serious: Yes (Other)
  Sender: FDA-Public Use
  Company Number: FR-ROCHE-1017959

PATIENT
  Sex: Female
  Weight: 72.5 kg

DRUGS (3)
  1. VEMURAFENIB [Suspect]
     Indication: METASTATIC MALIGNANT MELANOMA
     Route: 048
     Dates: start: 20110905, end: 20111014
  2. VEMURAFENIB [Suspect]
  3. VEMURAFENIB [Suspect]
     Dates: end: 20111129

REACTIONS (1)
  - NEUTROPENIA [None]
